FAERS Safety Report 4894639-7 (Version None)
Quarter: 2006Q1

REPORT INFORMATION
  Report Type: 
  Country: None (occurrence: None)
  Receive Date: 20060127
  Receipt Date: 20051222
  Transmission Date: 20060701
  Serious: Yes (Hospitalization)
  Sender: FDA-Public Use
  Company Number: US-MERCK-0512USA03624

PATIENT
  Age: 66 Year
  Sex: Female
  Weight: 74 kg

DRUGS (12)
  1. VIOXX [Suspect]
     Indication: ARTHRITIS
     Route: 048
     Dates: start: 20030101, end: 20040901
  2. CALCIUM (UNSPECIFIED) [Concomitant]
     Route: 065
  3. VITAMIN E [Concomitant]
     Route: 065
  4. ASCORBIC ACID [Concomitant]
     Route: 065
  5. OCUVITE [Concomitant]
     Route: 065
  6. PLAVIX [Concomitant]
     Route: 065
  7. THEO-DUR [Concomitant]
     Route: 065
  8. ALBUTEROL [Concomitant]
     Route: 065
  9. ATROVENT [Concomitant]
     Route: 065
  10. DOXEPIN HYDROCHLORIDE [Concomitant]
     Route: 065
  11. VICODIN [Concomitant]
     Route: 065
  12. [THERAPY UNSPECIFIED] [Concomitant]
     Route: 065

REACTIONS (5)
  - ARTHROPATHY [None]
  - CEREBROVASCULAR ACCIDENT [None]
  - EYE DISORDER [None]
  - MYOCARDIAL INFARCTION [None]
  - ULCER HAEMORRHAGE [None]
